FAERS Safety Report 7137619-3 (Version None)
Quarter: 2010Q4

REPORT INFORMATION
  Report Type: 
  Country: None (occurrence: None)
  Receive Date: 20101119
  Receipt Date: 20101103
  Transmission Date: 20110411
  Serious: Yes (Other)
  Sender: FDA-Public Use
  Company Number: DSM-2010-01639

PATIENT
  Age: 66 Year
  Sex: Female

DRUGS (7)
  1. OLMESARTAN MEDOXOMIL [Suspect]
     Indication: HYPERTENSION
     Dosage: 20 MG (20 MG, 1 IN 1 D), ORAL
     Route: 048
     Dates: start: 20100101, end: 20100101
  2. DIAZEPAM [Concomitant]
  3. XANAX [Concomitant]
  4. BETASERIC (BETAHISTINE) (BETAHISTINE) [Concomitant]
  5. LETTER (LEVOTHYROXINE SODIUM) (LEVOTHYROXINE SODIUM) [Concomitant]
  6. ZARATOR (ATORVASTATIN) (ATORVASTATIN) [Concomitant]
  7. STUGERON (CINNARIZINE) (CINNARIZINE) [Concomitant]

REACTIONS (2)
  - EYELID OEDEMA [None]
  - OEDEMA PERIPHERAL [None]
